FAERS Safety Report 8397074 (Version 2)
Quarter: 2012Q4

REPORT INFORMATION
  Report Type: 
  Country: US (occurrence: US)
  Receive Date: 20120209
  Receipt Date: 20120917
  Transmission Date: 20130627
  Serious: Yes (Other)
  Sender: FDA-Public Use
  Company Number: US-US-EMD SERONO, INC.-7110701

PATIENT
  Age: 47 Year
  Sex: Female

DRUGS (2)
  1. REBIF [Suspect]
     Indication: PRODUCT USED FOR UNKNOWN INDICATION
     Route: 058
     Dates: start: 20060317, end: 201201
  2. REBIF [Suspect]
     Route: 058
     Dates: start: 201201

REACTIONS (3)
  - Nephrolithiasis [Recovered/Resolved]
  - Injection site erythema [Unknown]
  - Injection site pain [Unknown]
